FAERS Safety Report 8085561-6 (Version None)
Quarter: 2012Q1

REPORT INFORMATION
  Report Type: 
  Country: None (occurrence: None)
  Receive Date: 20120128
  Receipt Date: 20110517
  Transmission Date: 20120608
  Serious: No
  Sender: FDA-Public Use
  Company Number: US-ABBOTT-11P-163-0715372-00

PATIENT
  Sex: Female
  Weight: 113.5 kg

DRUGS (5)
  1. ALBUTEROL [Concomitant]
     Indication: ASTHMA
     Dosage: AS NEEDED
     Route: 055
  2. METHOTREXATE [Concomitant]
     Indication: MENINGITIS
     Dosage: 8TABS/1WEEKSTRENGTHUNREPORTED
  3. HUMIRA [Suspect]
     Indication: MENINGITIS
     Dates: start: 20110323, end: 20110501
  4. TOPAMAX [Concomitant]
     Indication: MENINGITIS
     Dosage: NOT REPORTED
  5. UNKNOWN MEDICATION [Concomitant]
     Indication: ASTHMA
     Dosage: NOT REPORTED

REACTIONS (5)
  - PRURITUS [None]
  - FLUSHING [None]
  - ERYTHEMA [None]
  - RASH PRURITIC [None]
  - RASH [None]
